FAERS Safety Report 4522403-7 (Version None)
Quarter: 2004Q4

REPORT INFORMATION
  Report Type: 
  Country: None (occurrence: None)
  Receive Date: 20041207
  Receipt Date: 20041122
  Transmission Date: 20050328
  Serious: Yes (Hospitalization)
  Sender: FDA-Public Use
  Company Number: USA041081215

PATIENT
  Age: 14 Year
  Sex: Female

DRUGS (3)
  1. HUMATROPE [Suspect]
     Indication: GROWTH HORMONE DEFICIENCY
  2. DDAVP (DESMOPRESSIN ACETATE) [Concomitant]
  3. HYDROCODONE [Concomitant]

REACTIONS (2)
  - HEADACHE [None]
  - PAIN [None]
